FAERS Safety Report 20708870 (Version 1)
Quarter: 2022Q2

REPORT INFORMATION
  Report Type: Spontaneous
  Country: BR (occurrence: BR)
  Receive Date: 20220414
  Receipt Date: 20220414
  Transmission Date: 20220720
  Serious: Yes (Hospitalization)
  Sender: FDA-Public Use
  Company Number: BR-STRIDES ARCOLAB LIMITED-2022SP003733

PATIENT
  Age: 36 Year
  Sex: Male

DRUGS (17)
  1. MORPHINE SULFATE [Suspect]
     Active Substance: MORPHINE SULFATE
     Indication: Product used for unknown indication
     Dosage: UNK
     Route: 065
  2. TRIAMCINOLONE ACETONIDE [Suspect]
     Active Substance: TRIAMCINOLONE ACETONIDE
     Indication: Anal fissure haemorrhage
     Dosage: 1 MILLIGRAM,UNK
     Route: 065
     Dates: start: 202004
  3. LIDOCAINE [Suspect]
     Active Substance: LIDOCAINE
     Indication: Anal fissure haemorrhage
     Dosage: 50 MILLIGRAM,UNK(OINTMENT)
     Route: 065
     Dates: start: 202004
  4. CARBAMAZEPINE [Suspect]
     Active Substance: CARBAMAZEPINE
     Indication: Product used for unknown indication
     Dosage: 400 MILLIGRAM PER DAY
     Route: 065
  5. ACETAMINOPHEN [Suspect]
     Active Substance: ACETAMINOPHEN
     Indication: Product used for unknown indication
     Dosage: 1500 MILLIGRAM PER DAY
     Route: 065
     Dates: start: 202004
  6. DIPYRONE [Suspect]
     Active Substance: DIPYRONE
     Indication: Product used for unknown indication
     Dosage: 1000 MILLIGRAM PER DAY
     Route: 065
     Dates: start: 202004
  7. DIPYRONE [Suspect]
     Active Substance: DIPYRONE
     Dosage: 750 MILLIGRAM PER DAY
     Route: 065
     Dates: start: 202004
  8. FEXOFENADINE HYDROCHLORIDE [Concomitant]
     Active Substance: FEXOFENADINE HYDROCHLORIDE
     Indication: Product used for unknown indication
     Dosage: 180 MILLIGRAM PER DAY
     Route: 065
     Dates: start: 202004
  9. CODEINE [Concomitant]
     Active Substance: CODEINE
     Indication: Product used for unknown indication
     Dosage: 30 MILLIGRAM PER DAY
     Route: 065
     Dates: start: 202004
  10. SCOPOLAMINE [Concomitant]
     Active Substance: SCOPOLAMINE
     Indication: Product used for unknown indication
     Dosage: 30 MILLIGRAM PER DAY
     Route: 065
     Dates: start: 202004
  11. ESCITALOPRAM [Concomitant]
     Active Substance: ESCITALOPRAM OXALATE
     Indication: Product used for unknown indication
     Dosage: 20 MILLIGRAM PER DAY
     Route: 065
  12. AMLODIPINE [Concomitant]
     Active Substance: AMLODIPINE BESYLATE
     Indication: Product used for unknown indication
     Dosage: 50 MILLIGRAM PER DAY
     Route: 065
  13. LOSARTAN [Concomitant]
     Active Substance: LOSARTAN
     Indication: Product used for unknown indication
     Dosage: 50 MILLIGRAM PER DAY
     Route: 065
  14. NEBIVOLOL [Concomitant]
     Active Substance: NEBIVOLOL
     Indication: Product used for unknown indication
     Dosage: 5 MILLIGRAM PER DAY
     Route: 065
  15. HYDROCORTISONE ACETATE [Concomitant]
     Active Substance: HYDROCORTISONE ACETATE
     Indication: Anal fissure haemorrhage
     Dosage: 2.5 MILLIGRAM PER DAY
     Route: 065
     Dates: start: 202004
  16. ZINC OXIDE [Concomitant]
     Active Substance: ZINC OXIDE
     Indication: Anal fissure haemorrhage
     Dosage: 180 MILLIGRAM
     Route: 065
     Dates: start: 202004
  17. ALUMINUM SUBACETATE [Concomitant]
     Indication: Anal fissure haemorrhage
     Dosage: UNK
     Route: 065

REACTIONS (2)
  - Drug reaction with eosinophilia and systemic symptoms [Recovered/Resolved]
  - Off label use [Unknown]

NARRATIVE: CASE EVENT DATE: 20200401
